FAERS Safety Report 6361139-7 (Version None)
Quarter: 2009Q3

REPORT INFORMATION
  Report Type: 
  Country: None (occurrence: None)
  Receive Date: 20090918
  Receipt Date: 20090908
  Transmission Date: 20100115
  Serious: Yes (Hospitalization, Other)
  Sender: FDA-Public Use
  Company Number: US-PFIZER INC-2007107003

PATIENT
  Sex: Female
  Weight: 54 kg

DRUGS (1)
  1. CHANTIX [Suspect]
     Indication: SMOKING CESSATION THERAPY
     Route: 048
     Dates: start: 20070401, end: 20070901

REACTIONS (87)
  - ACUTE CORONARY SYNDROME [None]
  - AGGRESSION [None]
  - AGITATION [None]
  - AMNESIA [None]
  - ANGER [None]
  - ANHEDONIA [None]
  - ANOSMIA [None]
  - ANXIETY [None]
  - ARRHYTHMIA [None]
  - ARTHRALGIA [None]
  - BALANCE DISORDER [None]
  - BLOOD POTASSIUM DECREASED [None]
  - BLOOD PRESSURE INCREASED [None]
  - BRADYPHRENIA [None]
  - CARDIAC FLUTTER [None]
  - CHEST DISCOMFORT [None]
  - CHILLS [None]
  - COMMUNICATION DISORDER [None]
  - CONSTIPATION [None]
  - DECREASED APPETITE [None]
  - DELUSIONAL DISORDER, PERSECUTORY TYPE [None]
  - DERMATITIS [None]
  - DISORIENTATION [None]
  - DISSOCIATION [None]
  - DISTURBANCE IN ATTENTION [None]
  - DRUG CLEARANCE DECREASED [None]
  - DRY MOUTH [None]
  - DYSARTHRIA [None]
  - DYSPHAGIA [None]
  - DYSPNOEA [None]
  - EMOTIONAL DISORDER [None]
  - EPISTAXIS [None]
  - EUPHORIC MOOD [None]
  - EYE IRRITATION [None]
  - EYE PAIN [None]
  - FACIAL PALSY [None]
  - FEELING COLD [None]
  - FIBROMYALGIA [None]
  - FLATULENCE [None]
  - GASTRIC DISORDER [None]
  - GASTRITIS [None]
  - GASTROOESOPHAGEAL REFLUX DISEASE [None]
  - HEARING IMPAIRED [None]
  - HEART RATE DECREASED [None]
  - HYPERGLYCAEMIA [None]
  - HYPERHIDROSIS [None]
  - HYPERSENSITIVITY [None]
  - HYPOTENSION [None]
  - INSOMNIA [None]
  - LIBIDO DECREASED [None]
  - MENSTRUAL DISORDER [None]
  - MIGRAINE [None]
  - MYALGIA [None]
  - MYODESOPSIA [None]
  - MYOSITIS [None]
  - NAUSEA [None]
  - NIGHT BLINDNESS [None]
  - NIGHTMARE [None]
  - NOCTURIA [None]
  - NYSTAGMUS [None]
  - OCULAR VASCULAR DISORDER [None]
  - PALPITATIONS [None]
  - PERIPHERAL ISCHAEMIA [None]
  - PHOTOPHOBIA [None]
  - PHOTOSENSITIVITY REACTION [None]
  - POLYURIA [None]
  - PRURITUS [None]
  - PSYCHOMOTOR HYPERACTIVITY [None]
  - PSYCHOMOTOR SKILLS IMPAIRED [None]
  - PSYCHOTIC DISORDER [None]
  - PYREXIA [None]
  - RESPIRATORY DISORDER [None]
  - RESTLESSNESS [None]
  - SENSORY DISTURBANCE [None]
  - SEXUAL DYSFUNCTION [None]
  - STRESS [None]
  - SUICIDAL IDEATION [None]
  - SYNCOPE [None]
  - THINKING ABNORMAL [None]
  - THIRST [None]
  - TINNITUS [None]
  - TREMOR [None]
  - URETHRAL SYNDROME [None]
  - VERTIGO [None]
  - VISION BLURRED [None]
  - VISUAL FIELD DEFECT [None]
  - VOMITING [None]
